FAERS Safety Report 17113855 (Version 1)
Quarter: 2019Q4

REPORT INFORMATION
  Report Type: Spontaneous
  Country: TR (occurrence: TR)
  Receive Date: 20191205
  Receipt Date: 20191205
  Transmission Date: 20200122
  Serious: Yes (Other)
  Sender: FDA-Public Use
  Company Number: TR-ROCHE-2488166

PATIENT
  Sex: Male

DRUGS (1)
  1. RANIBIZUMAB. [Suspect]
     Active Substance: RANIBIZUMAB
     Indication: RETINOPATHY OF PREMATURITY
     Dosage: UNK, (0.25 MG IN 0.025 ML)
     Route: 050

REACTIONS (3)
  - Product use in unapproved indication [Unknown]
  - Retinopathy of prematurity [Unknown]
  - Off label use [Unknown]
